FAERS Safety Report 8432890-X (Version None)
Quarter: 2012Q2

REPORT INFORMATION
  Report Type: 
  Country: None (occurrence: None)
  Receive Date: 20120613
  Receipt Date: 20120605
  Transmission Date: 20120825
  Serious: Yes (Other)
  Sender: FDA-Public Use
  Company Number: DE-FRI-1000031152

PATIENT
  Age: 51 Year
  Sex: Male

DRUGS (3)
  1. METFORMIN HCL [Concomitant]
     Route: 048
  2. DIOVAN [Concomitant]
     Route: 048
  3. NEBIVOLOL [Suspect]
     Indication: HYPERTENSION
     Dosage: 5 MG
     Route: 048

REACTIONS (1)
  - MACULAR OEDEMA [None]
